FAERS Safety Report 4322476-0 (Version None)
Quarter: 2004Q1

REPORT INFORMATION
  Report Type: 
  Country: None (occurrence: None)
  Receive Date: 20040319
  Receipt Date: 20040311
  Transmission Date: 20041129
  Serious: Yes (Life-Threatening, Hospitalization)
  Sender: FDA-Public Use
  Company Number: D01200400137

PATIENT
  Age: 68 Year
  Sex: Male

DRUGS (4)
  1. (FONDAPARINUX) - SOLUTION - UNIT DOSE : UNKNOWN [Suspect]
     Indication: MYOCARDIAL INFARCTION
     Dosage: 2.5 MG QD
     Route: 058
     Dates: start: 20040108, end: 20040112
  2. ASPIRIN [Concomitant]
  3. LOW MOLECULAR WEIGHT HEPARIN (HEPARIN FRACTION) [Concomitant]
  4. CYCLOKAPRON (TRANEXAMIC ACID) [Concomitant]

REACTIONS (8)
  - CARDIOGENIC SHOCK [None]
  - GRAFT THROMBOSIS [None]
  - HAEMOGLOBIN DECREASED [None]
  - HEPATIC FAILURE [None]
  - MULTI-ORGAN FAILURE [None]
  - POST PROCEDURAL HAEMORRHAGE [None]
  - RENAL FAILURE [None]
  - THROMBOCYTOPENIA [None]
